FAERS Safety Report 7065795-X (Version None)
Quarter: 2010Q4

REPORT INFORMATION
  Report Type: 
  Country: None (occurrence: None)
  Receive Date: 20101027
  Receipt Date: 20101018
  Transmission Date: 20110411
  Serious: Yes (Death, Other)
  Sender: FDA-Public Use
  Company Number: US-ELI_LILLY_AND_COMPANY-US201004002313

PATIENT
  Sex: Female

DRUGS (4)
  1. FORTEO [Suspect]
     Dosage: UNK, UNKNOWN
  2. METHIMAZOLE [Concomitant]
  3. VITAMIN A [Concomitant]
  4. VITAMIN D [Concomitant]

REACTIONS (7)
  - BACK INJURY [None]
  - CARDIO-RESPIRATORY ARREST [None]
  - CRANIOTOMY [None]
  - FALL [None]
  - GLIOBLASTOMA MULTIFORME [None]
  - PNEUMONIA [None]
  - SEPTIC SHOCK [None]
